FAERS Safety Report 8023014-1 (Version None)
Quarter: 2012Q1

REPORT INFORMATION
  Report Type: 
  Country: None (occurrence: None)
  Receive Date: 20120104
  Receipt Date: 20111223
  Transmission Date: 20120608
  Serious: Yes (Hospitalization)
  Sender: FDA-Public Use
  Company Number: TR-MEDIMMUNE-MEDI-0014325

PATIENT
  Sex: Male
  Weight: 4 kg

DRUGS (1)
  1. SYNAGIS [Suspect]
     Dosage: 50 MG X3 (3 DOSAGE FORMS, 50 MG X3)
     Route: 030
     Dates: start: 20111025, end: 20111130

REACTIONS (3)
  - WHEEZING [None]
  - PNEUMONIA [None]
  - CYANOSIS [None]
